FAERS Safety Report 9278397 (Version 1)
Quarter: 2013Q2

REPORT INFORMATION
  Report Type: Spontaneous
  Country: US (occurrence: None)
  Receive Date: 20130506
  Receipt Date: 20130506
  Transmission Date: 20140414
  Serious: Yes (Other)
  Sender: FDA-Public Use
  Company Number: None

PATIENT
  Age: 45 Year
  Sex: Male
  Weight: 84.82 kg

DRUGS (8)
  1. POTIGA [Suspect]
     Indication: EPILEPSY
     Dates: start: 20121218, end: 20130405
  2. POTIGA [Suspect]
     Indication: EPILEPSY
     Dates: start: 20121106, end: 20130503
  3. TRILEPTAL [Concomitant]
  4. VIMPAT [Concomitant]
  5. FELABATOL [Concomitant]
  6. BANZEL [Concomitant]
  7. LEXAPRO [Concomitant]
  8. PRILOSEC [Concomitant]

REACTIONS (3)
  - Vitreous floaters [None]
  - Retinal detachment [None]
  - Urinary retention [None]
